FAERS Safety Report 25745783 (Version 3)
Quarter: 2025Q4

REPORT INFORMATION
  Report Type: Report from Study
  Country: US (occurrence: US)
  Receive Date: 20250901
  Receipt Date: 20251017
  Transmission Date: 20260117
  Serious: Yes (Hospitalization)
  Sender: ABBVIE
  Company Number: US-ABBVIE-6436957

PATIENT
  Age: 41 Year
  Sex: Male

DRUGS (1)
  1. RINVOQ [Suspect]
     Active Substance: UPADACITINIB
     Indication: Rheumatoid arthritis
     Route: 048
     Dates: start: 20250723, end: 20250824

REACTIONS (2)
  - Fistula [Unknown]
  - Abscess [Recovered/Resolved]

NARRATIVE: CASE EVENT DATE: 20250101
